FAERS Safety Report 4898597-0 (Version None)
Quarter: 2006Q1

REPORT INFORMATION
  Report Type: 
  Country: None (occurrence: None)
  Receive Date: 20060130
  Receipt Date: 20060119
  Transmission Date: 20060701
  Serious: Yes (Death, Other)
  Sender: FDA-Public Use
  Company Number: 221359

PATIENT
  Age: 68 Year
  Sex: Male

DRUGS (2)
  1. ACTIVASE [Suspect]
     Indication: CEREBROVASCULAR ACCIDENT
     Dosage: 65 MG, INTRAVENOUS
     Route: 042
     Dates: start: 20051222, end: 20051222
  2. CARDIOSPIRINE (ASPIRIN) [Concomitant]

REACTIONS (8)
  - AORTIC ANEURYSM [None]
  - AORTIC THROMBOSIS [None]
  - CEREBRAL HAEMORRHAGE [None]
  - DEPRESSED LEVEL OF CONSCIOUSNESS [None]
  - ISCHAEMIC STROKE [None]
  - MYOCARDIAL INFARCTION [None]
  - MYOCARDIAL ISCHAEMIA [None]
  - PERIPHERAL ISCHAEMIA [None]
